FAERS Safety Report 8830743 (Version 1)
Quarter: 2012Q4

REPORT INFORMATION
  Report Type: 
  Country: BR (occurrence: BR)
  Receive Date: 20121009
  Receipt Date: 20121009
  Transmission Date: 20130627
  Serious: Yes (Other)
  Sender: FDA-Public Use
  Company Number: BR-NOVOPROD-361321

PATIENT
  Sex: Male

DRUGS (1)
  1. NOVOLIN N [Suspect]
     Indication: OFF LABEL USE
     Dosage: UNK
     Route: 048
     Dates: start: 20120928

REACTIONS (5)
  - Suicide attempt [Unknown]
  - Intentional drug misuse [Unknown]
  - Abdominal discomfort [Unknown]
  - Dizziness [Unknown]
  - Blood glucose decreased [Unknown]
